FAERS Safety Report 20675343 (Version 1)
Quarter: 2022Q2

REPORT INFORMATION
  Report Type: Spontaneous
  Country: US (occurrence: None)
  Receive Date: 20220404
  Receipt Date: 20220404
  Transmission Date: 20220721
  Serious: Yes (Hospitalization)
  Sender: FDA-Public Use
  Company Number: None

PATIENT
  Age: 54 Year
  Sex: Female

DRUGS (2)
  1. CAPECITABINE [Suspect]
     Active Substance: CAPECITABINE
     Indication: Rectal cancer
     Dosage: FREQUENCY : TWICE A DAY;?
     Route: 048
     Dates: start: 202203, end: 202203
  2. OXALIPLATIN [Suspect]
     Active Substance: OXALIPLATIN

REACTIONS (4)
  - Diarrhoea [None]
  - Nausea [None]
  - Fatigue [None]
  - Hypersensitivity [None]

NARRATIVE: CASE EVENT DATE: 20220214
